FAERS Safety Report 24014139 (Version 1)
Quarter: 2024Q2

REPORT INFORMATION
  Report Type: Spontaneous
  Country: ES (occurrence: ES)
  Receive Date: 20240626
  Receipt Date: 20240626
  Transmission Date: 20240716
  Serious: Yes (Life-Threatening, Hospitalization)
  Sender: FDA-Public Use
  Company Number: None

PATIENT
  Age: 47 Year
  Sex: Female

DRUGS (3)
  1. ETOPOSIDE [Suspect]
     Active Substance: ETOPOSIDE
     Indication: Gestational trophoblastic tumour
     Dosage: C1D1: ETOPOSIDE 200 MG D2 ETOPOSIDE 200 MG (100 MG/M2)
     Dates: start: 20240507, end: 20240508
  2. METHOTREXATE [Suspect]
     Active Substance: METHOTREXATE
     Indication: Gestational trophoblastic tumour
     Dosage: METHOTREXATE 200 MG BOLUS - METHOTREXATE 400 MG IN CONTINUOUS?INFUSION FOR 12 HOURS
     Dates: start: 20240507, end: 20240507
  3. DACTINOMYCIN [Suspect]
     Active Substance: DACTINOMYCIN
     Indication: Gestational trophoblastic tumour
     Dosage: D1: ACTINOMYCIN D 600 MCG - D2: ACTINOMYCIN D 700 MCG
     Dates: start: 20240507, end: 20240508

REACTIONS (3)
  - Pancytopenia [Recovering/Resolving]
  - Agranulocytosis [Recovered/Resolved]
  - Dermatitis acneiform [Recovered/Resolved]

NARRATIVE: CASE EVENT DATE: 20240510
